FAERS Safety Report 14856608 (Version 1)
Quarter: 2018Q2

REPORT INFORMATION
  Report Type: Spontaneous
  Country: US (occurrence: US)
  Receive Date: 20180507
  Receipt Date: 20180507
  Transmission Date: 20180711
  Serious: No
  Sender: FDA-Public Use
  Company Number: US-ROCHE-2027732

PATIENT
  Sex: Male

DRUGS (10)
  1. LOVASTATIN. [Concomitant]
     Active Substance: LOVASTATIN
  2. MUPIROCIN. [Concomitant]
     Active Substance: MUPIROCIN
  3. VENTOLIN HFA [Concomitant]
     Active Substance: ALBUTEROL SULFATE
  4. TIZANIDINE HCL [Concomitant]
     Active Substance: TIZANIDINE HYDROCHLORIDE
  5. LISINOPRIL. [Concomitant]
     Active Substance: LISINOPRIL
  6. ESBRIET [Suspect]
     Active Substance: PIRFENIDONE
     Indication: IDIOPATHIC PULMONARY FIBROSIS
     Route: 048
     Dates: start: 201702
  7. ADVAIR HFA [Concomitant]
     Active Substance: FLUTICASONE PROPIONATE\SALMETEROL XINAFOATE
  8. FUROSEMIDE. [Concomitant]
     Active Substance: FUROSEMIDE
  9. BISOPROLOL [Concomitant]
     Active Substance: BISOPROLOL
  10. OXYCODONE [Concomitant]
     Active Substance: OXYCODONE

REACTIONS (2)
  - Fatigue [Not Recovered/Not Resolved]
  - Miliaria [Not Recovered/Not Resolved]
